FAERS Safety Report 6664767-4 (Version None)
Quarter: 2010Q2

REPORT INFORMATION
  Report Type: 
  Country: None (occurrence: None)
  Receive Date: 20100401
  Receipt Date: 20100319
  Transmission Date: 20101027
  Serious: Yes (Hospitalization, Other)
  Sender: FDA-Public Use
  Company Number: FI-AMGEN-US401599

PATIENT
  Sex: Female

DRUGS (11)
  1. ENBREL [Suspect]
     Indication: RHEUMATOID ARTHRITIS
     Route: 058
     Dates: start: 20080411, end: 20081001
  2. MABTHERA [Suspect]
     Indication: RHEUMATOID ARTHRITIS
     Dosage: THE PATIENT RECEIVED TWO TREATMENT CYCLES WITH 1000 MG ONCE EVERY 2 WEEKS
     Route: 042
     Dates: start: 20090112, end: 20090813
  3. HUMIRA [Suspect]
     Indication: RHEUMATOID ARTHRITIS
     Route: 058
     Dates: start: 20081002, end: 20081201
  4. MYOCRISIN [Concomitant]
     Indication: RHEUMATOID ARTHRITIS
     Route: 030
     Dates: start: 20091020
  5. OXIKLORIN [Concomitant]
     Indication: RHEUMATOID ARTHRITIS
     Dosage: 300 MG DOSE, FREQUENCY UNSPECIFIED
     Route: 048
     Dates: start: 20061101
  6. PULMICORT [Concomitant]
     Indication: ASTHMA
     Dosage: 800 MG DOSE, FREQUENCY UNSPECIFIED
     Route: 055
  7. EMCONCOR [Concomitant]
     Indication: HYPERTENSION
     Dosage: 10 MG DOSE, FREQUENCY UNSPECIFIED
     Route: 048
  8. AMLODIPINE [Concomitant]
     Indication: HYPERTENSION
     Dosage: 5 MG DOSE, FREQUENCY UNSPECIFIED
     Route: 048
  9. ALENDRONIC ACID [Concomitant]
     Indication: OSTEOPOROSIS
     Route: 048
     Dates: start: 20090201
  10. CALCICHEW-D3 FORTE [Concomitant]
     Indication: OSTEOPOROSIS
     Dosage: 500 MG/10 MICROGRAM DOSE, FREQUENCY UNSPECIFIED
     Route: 048
  11. PREDNISONE TAB [Concomitant]
     Indication: RHEUMATOID ARTHRITIS
     Dosage: 10 MG DOSE, FREQUENCY UNSPECIFIED
     Route: 048
     Dates: start: 20061101

REACTIONS (1)
  - PULMONARY GRANULOMA [None]
